FAERS Safety Report 9170306 (Version 1)
Quarter: 2013Q1

REPORT INFORMATION
  Report Type: Spontaneous
  Country: US (occurrence: None)
  Receive Date: 20130315
  Receipt Date: 20130315
  Transmission Date: 20140127
  Serious: Yes (Life-Threatening, Hospitalization)
  Sender: FDA-Public Use
  Company Number: None

PATIENT
  Age: 65 Year
  Sex: Female
  Weight: 62.6 kg

DRUGS (1)
  1. BACTRIM DS [Suspect]
     Dosage: 2X DAILY 14 DAYS
     Dates: start: 20130204, end: 20130218

REACTIONS (8)
  - Pyrexia [None]
  - Chills [None]
  - Rash [None]
  - Lymphadenopathy [None]
  - White blood cell count decreased [None]
  - Platelet count decreased [None]
  - Bone marrow disorder [None]
  - Drug hypersensitivity [None]
